FAERS Safety Report 8183296-2 (Version None)
Quarter: 2012Q1

REPORT INFORMATION
  Report Type: 
  Country: None (occurrence: None)
  Receive Date: 20120305
  Receipt Date: 20120229
  Transmission Date: 20120608
  Serious: No
  Sender: FDA-Public Use
  Company Number: US-PFIZER INC-2012033115

PATIENT
  Sex: Female
  Weight: 70.295 kg

DRUGS (2)
  1. CYMBALTA [Concomitant]
     Indication: NEURALGIA
     Dosage: 30 MG, DAILY
  2. LYRICA [Suspect]
     Indication: NEUROPATHY PERIPHERAL
     Dosage: 75 MG, DAILY
     Dates: start: 20090101, end: 20120101

REACTIONS (3)
  - NEUROPATHY PERIPHERAL [None]
  - MYALGIA [None]
  - MUSCULOSKELETAL STIFFNESS [None]
